FAERS Safety Report 10179817 (Version 1)
Quarter: 2014Q2

REPORT INFORMATION
  Report Type: Spontaneous
  Country: US (occurrence: US)
  Receive Date: 20140519
  Receipt Date: 20140519
  Transmission Date: 20141212
  Serious: No
  Sender: FDA-Public Use
  Company Number: US-AMGEN INC.-USASP2013068823

PATIENT
  Age: 62 Year
  Sex: Female

DRUGS (7)
  1. PROLIA [Suspect]
     Indication: OSTEOPOROSIS POSTMENOPAUSAL
     Dosage: UNK
     Route: 065
     Dates: start: 2011
  2. VICODIN [Concomitant]
     Indication: PAIN
  3. GABAPENTIN [Concomitant]
  4. CONCERTA [Concomitant]
  5. CALCIUM [Concomitant]
  6. VITAMIN D3 [Concomitant]
  7. MULTIVITAMIN                       /00097801/ [Concomitant]

REACTIONS (4)
  - Arthralgia [Unknown]
  - Back pain [Unknown]
  - Bone pain [Unknown]
  - Gait disturbance [Unknown]
